FAERS Safety Report 20635006 (Version 2)
Quarter: 2022Q3

REPORT INFORMATION
  Report Type: Spontaneous
  Country: CA (occurrence: CA)
  Receive Date: 20220325
  Receipt Date: 20220719
  Transmission Date: 20221027
  Serious: Yes (Hospitalization, Other)
  Sender: FDA-Public Use
  Company Number: CA-SA-SAC20220317000198

PATIENT
  Age: 71 Year
  Sex: Female

DRUGS (1)
  1. KEVZARA [Suspect]
     Active Substance: SARILUMAB
     Dosage: 1.14 ML
     Route: 058

REACTIONS (5)
  - Asthenia [Unknown]
  - Sepsis [Unknown]
  - Urosepsis [Recovering/Resolving]
  - Urinary tract infection [Recovering/Resolving]
  - Product dose omission issue [Unknown]
